FAERS Safety Report 7466439-5 (Version None)
Quarter: 2011Q2

REPORT INFORMATION
  Report Type: 
  Country: None (occurrence: None)
  Receive Date: 20110509
  Receipt Date: 20110421
  Transmission Date: 20111010
  Serious: No
  Sender: FDA-Public Use
  Company Number: US-B.I. PHARMACEUTICALS,INC./RIDGEFIELD-2011-BP-06853BP

PATIENT
  Sex: Female

DRUGS (10)
  1. ZETIA [Concomitant]
     Indication: CARDIAC DISORDER
  2. DIOVAN [Concomitant]
     Indication: CARDIAC DISORDER
  3. CRESTOR [Concomitant]
  4. PRADAXA [Suspect]
     Indication: ATRIAL FIBRILLATION
     Dosage: 300 MG
     Route: 048
     Dates: start: 20110131
  5. SINGULAIR [Concomitant]
  6. ISOSORBIDE DINITRATE [Concomitant]
     Indication: CARDIAC DISORDER
  7. DILTIAZEM [Concomitant]
  8. METOPROLOL TARTRATE [Concomitant]
  9. LOPRESSOR [Concomitant]
     Indication: CARDIAC DISORDER
  10. TRAMADOL HCL [Concomitant]
     Indication: HEADACHE

REACTIONS (5)
  - FATIGUE [None]
  - DIZZINESS [None]
  - FURUNCLE [None]
  - HEADACHE [None]
  - FALL [None]
